FAERS Safety Report 12118369 (Version 1)
Quarter: 2016Q1

REPORT INFORMATION
  Report Type: Spontaneous
  Country: CN (occurrence: CN)
  Receive Date: 20160226
  Receipt Date: 20160226
  Transmission Date: 20160526
  Serious: Yes (Other)
  Sender: FDA-Public Use
  Company Number: CN-BAYER-2016-031101

PATIENT
  Age: 72 Year
  Sex: Male

DRUGS (1)
  1. MOXIFLOXACIN ORAL [Suspect]
     Active Substance: MOXIFLOXACIN
     Dosage: UNK
     Route: 048

REACTIONS (3)
  - Back pain [Recovering/Resolving]
  - Abasia [Recovering/Resolving]
  - Chromaturia [Recovering/Resolving]
